FAERS Safety Report 5807467-2 (Version None)
Quarter: 2008Q3

REPORT INFORMATION
  Report Type: 
  Country: None (occurrence: None)
  Receive Date: 20080711
  Receipt Date: 20010810
  Transmission Date: 20090109
  Serious: Yes (Life-Threatening, Other)
  Sender: FDA-Public Use
  Company Number: US-BAXTER-2007BH008912

PATIENT
  Age: 31 Year
  Sex: Male

DRUGS (1)
  1. LACTATED RINGER'S [Suspect]
     Indication: DEHYDRATION
     Route: 042

REACTIONS (5)
  - DYSPNOEA [None]
  - FLUSHING [None]
  - OEDEMA PERIPHERAL [None]
  - PRURITUS GENERALISED [None]
  - URTICARIA [None]
